FAERS Safety Report 5046568-6 (Version None)
Quarter: 2006Q2

REPORT INFORMATION
  Report Type: 
  Country: None (occurrence: None)
  Receive Date: 20060630
  Receipt Date: 20060614
  Transmission Date: 20061013
  Serious: Yes (Hospitalization)
  Sender: FDA-Public Use
  Company Number: 8017258

PATIENT
  Age: 44 Year
  Sex: Female
  Weight: 68.2 kg

DRUGS (2)
  1. KEPPRA [Suspect]
     Indication: PETIT MAL EPILEPSY
     Dosage: 1500 MG PO
     Route: 048
     Dates: start: 20060301, end: 20060607
  2. DILANTIN [Concomitant]

REACTIONS (1)
  - INAPPROPRIATE ANTIDIURETIC HORMONE SECRETION [None]
